FAERS Safety Report 19214412 (Version 2)
Quarter: 2021Q2

REPORT INFORMATION
  Report Type: Spontaneous
  Country: JP (occurrence: JP)
  Receive Date: 20210505
  Receipt Date: 20210517
  Transmission Date: 20210717
  Serious: No
  Sender: FDA-Public Use
  Company Number: JP-AMGEN-JPNSP2021067298

PATIENT
  Age: 64 Year
  Sex: Male
  Weight: 64 kg

DRUGS (25)
  1. LANSOPRAZOLE. [Concomitant]
     Active Substance: LANSOPRAZOLE
     Indication: GASTROOESOPHAGEAL REFLUX DISEASE
     Dosage: 15 MG, EVERYDAY, AFTER BREAKFAST
     Route: 048
  2. CARVEDILOL. [Concomitant]
     Active Substance: CARVEDILOL
     Indication: CARDIAC FAILURE CHRONIC
  3. DOMPERIDONE [Concomitant]
     Active Substance: DOMPERIDONE
     Indication: NAUSEA
  4. DROXIDOPA [Concomitant]
     Active Substance: DROXIDOPA
     Indication: DIALYSIS HYPOTENSION
     Dosage: 200 MG, Q56H, DIALYSIS DAY
     Route: 048
  5. DARBEPOETIN ALFA [Concomitant]
     Active Substance: DARBEPOETIN ALFA
     Dosage: 20 MICROGRAM, QWK
     Route: 042
     Dates: start: 20201104
  6. ASPIRIN [ACETYLSALICYLIC ACID] [Concomitant]
     Active Substance: ASPIRIN
     Indication: PROPHYLAXIS
     Dosage: 100 MG, EVERYDAY, AFTER BREAKFAST
     Route: 048
     Dates: end: 20210422
  7. DAIKENCHUTO [Concomitant]
     Active Substance: HERBALS
     Indication: ABDOMINAL DISCOMFORT
     Dosage: 2.5 G, Q8H, AFTER EACH MEAL
     Route: 048
  8. ROSUVASTATIN CALCIUM. [Concomitant]
     Active Substance: ROSUVASTATIN CALCIUM
     Indication: DYSLIPIDAEMIA
     Dosage: 5 MG, EVERYDAY, AFTER DINNER
     Route: 048
     Dates: start: 20200601
  9. REBAMIPIDE [Concomitant]
     Active Substance: REBAMIPIDE
     Indication: CHRONIC GASTRITIS
     Dosage: 100 MG, Q8H, AFTER EACH MEAL
     Route: 048
  10. CARVEDILOL. [Concomitant]
     Active Substance: CARVEDILOL
     Indication: HYPERTENSION
     Dosage: 2.5 MG, ONCE A DAY, AFTER BREAKFAST, NON?DIALYSIS DAY
     Route: 048
  11. SENNOSIDE [SENNOSIDE A+B] [Concomitant]
     Active Substance: SENNOSIDES A AND B
     Indication: CONSTIPATION
     Dosage: 24 MG, BEFORE SLEEP (ADJUSTMENT BY THE PATIENT)
     Route: 048
  12. SENNA LEAF [Concomitant]
     Active Substance: SENNA LEAF
     Indication: CONSTIPATION
     Dosage: 0.5 G, BEFORE SLEEP (ADJUSTMENT BY THE PATIENT)
     Route: 048
  13. VALSARTAN. [Concomitant]
     Active Substance: VALSARTAN
     Indication: HYPERTENSION
     Dosage: 10 MG, ONCE A DAY, AFTER BREAKFAST, NON?DIALYSIS DAY
     Route: 048
  14. ETHYL ICOSAPENTATE [Concomitant]
     Active Substance: ICOSAPENT ETHYL
     Indication: DYSLIPIDAEMIA
     Dosage: 900 MG, EVERYDAY, AFTER DINNER
     Route: 048
     Dates: start: 20210412
  15. PARSABIV [Suspect]
     Active Substance: ETELCALCETIDE HYDROCHLORIDE
     Indication: HYPERPARATHYROIDISM SECONDARY
     Dosage: 5 MG, Q56H
     Route: 010
     Dates: start: 20210412
  16. OXAROL [Concomitant]
     Active Substance: MAXACALCITOL
     Dosage: 2.5 UG, Q56H
     Route: 065
  17. FOSRENOL [Concomitant]
     Active Substance: LANTHANUM CARBONATE
     Indication: HYPERPHOSPHATAEMIA
     Dosage: 500 MG, Q8H, IMMEDIATELY BEFORE EVERY MEAL
     Route: 048
     Dates: start: 20200424
  18. L CARTIN FF [Concomitant]
     Active Substance: LEVOCARNITINE
     Indication: NEPHROGENIC ANAEMIA
     Dosage: 1000 MG, Q56H
     Route: 042
  19. PREDNISOLONE. [Concomitant]
     Active Substance: PREDNISOLONE
     Indication: GLOMERULONEPHRITIS CHRONIC
     Dosage: 5 MG, EVERYDAY, AFTER BREAKFAST
     Route: 048
  20. NICORANDIL [Concomitant]
     Active Substance: NICORANDIL
     Indication: ANGINA PECTORIS
     Dosage: 5 MG, Q8H, AFTER EACH MEAL
     Route: 048
  21. DOMPERIDONE [Concomitant]
     Active Substance: DOMPERIDONE
     Indication: ABDOMINAL DISCOMFORT
     Dosage: 10 MG, PRN
     Route: 048
     Dates: start: 20210409
  22. PICOSULFATE NA [Concomitant]
     Active Substance: SODIUM PICOSULFATE
     Indication: CONSTIPATION
     Dosage: 10?15 DROPS/DOSE, PRN
     Route: 048
     Dates: start: 20200601
  23. ASPIRIN [ACETYLSALICYLIC ACID] [Concomitant]
     Active Substance: ASPIRIN
     Indication: ISCHAEMIC HEART DISEASE PROPHYLAXIS
  24. MOSAPRIDE CITRATE [Concomitant]
     Active Substance: MOSAPRIDE CITRATE
     Indication: ABDOMINAL DISCOMFORT
     Dosage: 5 MG, Q8H, AFTER EACH MEAL
     Route: 048
  25. CLOPIDOGREL [Concomitant]
     Active Substance: CLOPIDOGREL BISULFATE
     Indication: PERIPHERAL ARTERIAL OCCLUSIVE DISEASE
     Dosage: 75 MG, EVERYDAY, AFTER DINNER
     Route: 048
     Dates: start: 20191006

REACTIONS (1)
  - No adverse event [Unknown]

NARRATIVE: CASE EVENT DATE: 20210422
